FAERS Safety Report 12392693 (Version 2)
Quarter: 2019Q3

REPORT INFORMATION
  Report Type: Spontaneous
  Country: US (occurrence: US)
  Receive Date: 20160523
  Receipt Date: 20190903
  Transmission Date: 20191004
  Serious: Yes (Death, Hospitalization, Other)
  Sender: FDA-Public Use
  Company Number: US-009507513-1605USA010234

PATIENT
  Sex: Male
  Weight: 174.15 kg

DRUGS (2)
  1. JANUVIA [Suspect]
     Active Substance: SITAGLIPTIN PHOSPHATE
     Dosage: 100 MILLIGRAM, QD
     Route: 048
     Dates: start: 20090204, end: 20090219
  2. JANUVIA [Suspect]
     Active Substance: SITAGLIPTIN PHOSPHATE
     Dosage: 100 MILLIGRAM, QD
     Route: 048
     Dates: start: 20110601, end: 20120416

REACTIONS (16)
  - Hepatic cirrhosis [Unknown]
  - Anaemia [Unknown]
  - Pancreatic carcinoma [Fatal]
  - Periodontal disease [Unknown]
  - Osteoarthritis [Unknown]
  - Diverticulum [Unknown]
  - Haematochezia [Unknown]
  - Psoriasis [Unknown]
  - Diverticulum intestinal [Unknown]
  - Hypercholesterolaemia [Unknown]
  - Renal cyst [Unknown]
  - Hyperglycaemia [Not Recovered/Not Resolved]
  - Varices oesophageal [Unknown]
  - Weight increased [Unknown]
  - Hypoglycaemia [Recovered/Resolved]
  - Sleep apnoea syndrome [Unknown]

NARRATIVE: CASE EVENT DATE: 200903
